FAERS Safety Report 14747796 (Version 1)
Quarter: 2018Q2

REPORT INFORMATION
  Report Type: Report from Study
  Country: JP (occurrence: JP)
  Receive Date: 20180411
  Receipt Date: 20180411
  Transmission Date: 20180711
  Serious: Yes (Hospitalization)
  Sender: FDA-Public Use
  Company Number: JP-MITSUBISHI TANABE PHARMA CORPORATION-MTPC2017-0003240

PATIENT
  Age: 71 Year
  Sex: Female
  Weight: 48 kg

DRUGS (15)
  1. RADICUT [Suspect]
     Active Substance: EDARAVONE
     Route: 041
     Dates: start: 20160912, end: 20160921
  2. RADICUT [Suspect]
     Active Substance: EDARAVONE
     Route: 041
     Dates: start: 20170116, end: 20170125
  3. MUCOSOLVAN [Concomitant]
     Active Substance: AMBROXOL HYDROCHLORIDE
     Indication: AMYOTROPHIC LATERAL SCLEROSIS
     Route: 048
  4. TRAMAL OD [Concomitant]
     Active Substance: TRAMADOL
     Route: 048
  5. CALONAL [Concomitant]
     Active Substance: ACETAMINOPHEN
     Route: 048
  6. RADICUT [Suspect]
     Active Substance: EDARAVONE
     Route: 041
     Dates: start: 20161010, end: 20161019
  7. RADICUT [Suspect]
     Active Substance: EDARAVONE
     Indication: AMYOTROPHIC LATERAL SCLEROSIS
     Route: 041
     Dates: start: 20160719, end: 20160726
  8. MAGMITT [Concomitant]
     Active Substance: MAGNESIUM OXIDE
     Indication: AMYOTROPHIC LATERAL SCLEROSIS
     Route: 048
     Dates: start: 20170116
  9. LOXONIN [Concomitant]
     Active Substance: LOXOPROFEN SODIUM
     Route: 061
  10. MUCODYNE [Concomitant]
     Active Substance: CARBOCYSTEINE
     Indication: AMYOTROPHIC LATERAL SCLEROSIS
     Route: 048
  11. RADICUT [Suspect]
     Active Substance: EDARAVONE
     Route: 041
     Dates: start: 20160815, end: 20160824
  12. RADICUT [Suspect]
     Active Substance: EDARAVONE
     Route: 041
     Dates: start: 20161110, end: 20161119
  13. RADICUT [Suspect]
     Active Substance: EDARAVONE
     Route: 041
     Dates: start: 20161212, end: 20161221
  14. RILUZOLE. [Concomitant]
     Active Substance: RILUZOLE
     Indication: AMYOTROPHIC LATERAL SCLEROSIS
     Route: 048
     Dates: start: 20160712
  15. BELSOMRA [Concomitant]
     Active Substance: SUVOREXANT
     Route: 048

REACTIONS (2)
  - Radius fracture [Recovering/Resolving]
  - Cystatin C increased [Recovered/Resolved]

NARRATIVE: CASE EVENT DATE: 20160721
